FAERS Safety Report 12118415 (Version 1)
Quarter: 2016Q1

REPORT INFORMATION
  Report Type: Spontaneous
  Country: US (occurrence: None)
  Receive Date: 20160224
  Receipt Date: 20160224
  Transmission Date: 20160526
  Serious: Yes (Hospitalization)
  Sender: FDA-Public Use
  Company Number: None

PATIENT
  Age: 78 Year
  Sex: Male
  Weight: 79.38 kg

DRUGS (10)
  1. FINASTERIDE. [Concomitant]
     Active Substance: FINASTERIDE
  2. ELIQUIS [Concomitant]
     Active Substance: APIXABAN
  3. VESICARE [Suspect]
     Active Substance: SOLIFENACIN SUCCINATE
     Indication: NOCTURIA
     Dosage: 1 PILL A DAY ONCE A DAY MOUTH
     Route: 048
     Dates: start: 20151227, end: 20160102
  4. MULTIVITAMIN [Concomitant]
     Active Substance: VITAMINS
  5. ONE-A-DAY NOS [Concomitant]
     Active Substance: MINERALS\VITAMINS
  6. FISH OIL [Concomitant]
     Active Substance: FISH OIL
  7. AMIODORONE [Concomitant]
     Active Substance: AMIODARONE
  8. SIMVASTATIN. [Concomitant]
     Active Substance: SIMVASTATIN
  9. ASPIRIN. [Concomitant]
     Active Substance: ASPIRIN
  10. DOXAZOSIN [Concomitant]
     Active Substance: DOXAZOSIN\DOXAZOSIN MESYLATE

REACTIONS (1)
  - Feeling abnormal [None]

NARRATIVE: CASE EVENT DATE: 20160102
